FAERS Safety Report 25764369 (Version 1)
Quarter: 2025Q3

REPORT INFORMATION
  Report Type: Spontaneous
  Country: US (occurrence: US)
  Receive Date: 20250905
  Receipt Date: 20250905
  Transmission Date: 20251021
  Serious: No
  Sender: DOMPE FARMACEUTICI
  Company Number: US-FARMAPROD-202412-4237

PATIENT
  Sex: Female
  Weight: 89.81 kg

DRUGS (14)
  1. OXERVATE [Suspect]
     Active Substance: CENEGERMIN-BKBJ
     Indication: Neurotrophic keratopathy
     Route: 047
     Dates: start: 20241209
  2. OXERVATE [Suspect]
     Active Substance: CENEGERMIN-BKBJ
     Indication: Neurotrophic keratopathy
  3. OXERVATE [Suspect]
     Active Substance: CENEGERMIN-BKBJ
  4. MONTELUKAST SODIUM [Concomitant]
     Active Substance: MONTELUKAST SODIUM
  5. VITAMIN B12 [Concomitant]
     Active Substance: CYANOCOBALAMIN
  6. OMEPRAZOLE [Concomitant]
     Active Substance: OMEPRAZOLE
  7. DELTA D3 [Concomitant]
  8. TRAZODONE HCL [Concomitant]
     Active Substance: TRAZODONE HYDROCHLORIDE
  9. NAPROXEN [Concomitant]
     Active Substance: NAPROXEN
  10. HYDROCHLOROTHIAZIDE [Concomitant]
     Active Substance: HYDROCHLOROTHIAZIDE
  11. VITAMIN C [Concomitant]
     Active Substance: ASCORBIC ACID
  12. IBUPROFEN [Concomitant]
     Active Substance: IBUPROFEN
  13. IRBESARTAN [Concomitant]
     Active Substance: IRBESARTAN
  14. VITAMIN C;MAGNESIUM;CALCIUM [Concomitant]

REACTIONS (4)
  - Eye pain [Unknown]
  - Product administration error [Unknown]
  - Therapy interrupted [Unknown]
  - Vitreous floaters [Unknown]
